FAERS Safety Report 6095977-5 (Version None)
Quarter: 2009Q1

REPORT INFORMATION
  Report Type: 
  Country: None (occurrence: None)
  Receive Date: 20090227
  Receipt Date: 20080729
  Transmission Date: 20090719
  Serious: No
  Sender: FDA-Public Use
  Company Number: A0739916A

PATIENT
  Age: 42 Year
  Sex: Male

DRUGS (2)
  1. LAMICTAL [Suspect]
     Indication: BIPOLAR DISORDER
     Dosage: 100MG PER DAY
     Route: 048
     Dates: start: 20080609
  2. ATIVAN [Concomitant]

REACTIONS (4)
  - HYPERHIDROSIS [None]
  - NECK PAIN [None]
  - OROPHARYNGEAL PAIN [None]
  - PYREXIA [None]
